FAERS Safety Report 7722489-2 (Version None)
Quarter: 2011Q3

REPORT INFORMATION
  Report Type: 
  Country: None (occurrence: None)
  Receive Date: 20110831
  Receipt Date: 20110824
  Transmission Date: 20111222
  Serious: Yes (Other)
  Sender: FDA-Public Use
  Company Number: US-PFIZER INC-2011153195

PATIENT
  Sex: Female

DRUGS (2)
  1. ENBREL [Suspect]
     Indication: RHEUMATOID ARTHRITIS
     Dosage: 50 MG, QWK
     Dates: start: 20050301
  2. MOTRIN [Suspect]
     Dosage: UNK

REACTIONS (13)
  - PULMONARY CONGESTION [None]
  - ASTHENIA [None]
  - LETHARGY [None]
  - BACK PAIN [None]
  - GASTROOESOPHAGEAL REFLUX DISEASE [None]
  - TENDON RUPTURE [None]
  - ARTHRALGIA [None]
  - NIGHT SWEATS [None]
  - COUGH [None]
  - DRUG HYPERSENSITIVITY [None]
  - DYSPNOEA [None]
  - HIATUS HERNIA [None]
  - CHEST PAIN [None]
